FAERS Safety Report 7405248-X (Version None)
Quarter: 2011Q1

REPORT INFORMATION
  Report Type: 
  Country: None (occurrence: None)
  Receive Date: 20110301
  Receipt Date: 20100120
  Transmission Date: 20110831
  Serious: Yes (Other)
  Sender: FDA-Public Use
  Company Number: 2211100-US-JNJFOC-20100110095

PATIENT
  Sex: Female

DRUGS (1)
  1. MOTRIN IB [Suspect]
     Indication: ILL-DEFINED DISORDER
     Dates: start: 20091101

REACTIONS (4)
  - PRODUCT QUALITY ISSUE [None]
  - VOMITING [None]
  - MALAISE [None]
  - RECTAL HAEMORRHAGE [None]
